FAERS Safety Report 8779458 (Version 1)
Quarter: 2012Q4

REPORT INFORMATION
  Report Type: 
  Country: MX (occurrence: MX)
  Receive Date: 20120912
  Receipt Date: 20120912
  Transmission Date: 20130627
  Serious: Yes (Hospitalization)
  Sender: FDA-Public Use
  Company Number: MX-SANOFI-AVENTIS-2012SA063704

PATIENT
  Age: 57 Year
  Sex: Male
  Weight: 69 kg

DRUGS (4)
  1. LANTUS [Suspect]
     Indication: DIABETES MELLITUS
     Route: 058
     Dates: end: 20110716
  2. GLIBENCLAMIDE [Suspect]
     Indication: DIABETES MELLITUS
     Route: 048
  3. METFORMIN [Suspect]
     Indication: DIABETES MELLITUS
     Route: 048
  4. ANTIHYPERTENSIVES [Suspect]
     Indication: HYPERTENSION ARTERIAL
     Route: 048
     Dates: end: 20110731

REACTIONS (1)
  - Myocardial infarction [Recovered/Resolved]
